FAERS Safety Report 25105182 (Version 2)
Quarter: 2025Q1

REPORT INFORMATION
  Report Type: Report from Study
  Country: DE (occurrence: DE)
  Receive Date: 20250321
  Receipt Date: 20250327
  Transmission Date: 20250409
  Serious: Yes (Hospitalization, Other)
  Sender: AKEBIA THERAPEUTICS
  Company Number: DE-MEDICE-2025-MHF-16143

PATIENT
  Sex: Male
  Weight: 92.5 kg

DRUGS (8)
  1. VADADUSTAT [Suspect]
     Active Substance: VADADUSTAT
     Indication: Nephrogenic anaemia
     Dosage: BASELINE: DAILY DOSE OF 1 X 300 MG
     Route: 065
  2. VADADUSTAT [Suspect]
     Active Substance: VADADUSTAT
     Dosage: WEEK 4: DAILY DOSE OF 1 X 300 MG
     Route: 065
  3. VADADUSTAT [Suspect]
     Active Substance: VADADUSTAT
     Dosage: WEEK 8: DAILY DOSE OF 1 X 300 MG
     Route: 065
  4. VADADUSTAT [Suspect]
     Active Substance: VADADUSTAT
     Dosage: WEEK 12: DAILY DOSE 1 X 300 MG + 150 MG
     Route: 065
  5. VADADUSTAT [Suspect]
     Active Substance: VADADUSTAT
     Dosage: WEEK 16: DAILY DOSE 1 X 300 MG + 150 MG
     Route: 065
  6. VADADUSTAT [Suspect]
     Active Substance: VADADUSTAT
     Dosage: WEEK 24: DAILY DOSE 1 X 300 MG + 2 X 150 MG
     Route: 065
  7. VADADUSTAT [Suspect]
     Active Substance: VADADUSTAT
     Dosage: WEEK 20: DAILY DOSE 1 X 300 MG + 150 MG
     Route: 065
  8. RENVELA [Concomitant]
     Active Substance: SEVELAMER CARBONATE
     Indication: Product used for unknown indication
     Route: 065

REACTIONS (2)
  - Cerebral haemorrhage [Unknown]
  - Fall [Unknown]
